FAERS Safety Report 25557822 (Version 1)
Quarter: 2025Q3

REPORT INFORMATION
  Report Type: Spontaneous
  Country: US (occurrence: US)
  Receive Date: 20250715
  Receipt Date: 20250715
  Transmission Date: 20251021
  Serious: No
  Sender: NOVO NORDISK
  Company Number: US-NOVOPROD-1312278

PATIENT
  Sex: Male
  Weight: 213 kg

DRUGS (1)
  1. SEMAGLUTIDE [Suspect]
     Active Substance: SEMAGLUTIDE
     Indication: Product used for unknown indication
     Route: 058
     Dates: start: 202310

REACTIONS (3)
  - Blood pressure measurement [Unknown]
  - Drug dose titration not performed [Unknown]
  - Suspected counterfeit product [Unknown]
